FAERS Safety Report 20047452 (Version 7)
Quarter: 2022Q2

REPORT INFORMATION
  Report Type: Report from Study
  Country: US (occurrence: US)
  Receive Date: 20211109
  Receipt Date: 20220628
  Transmission Date: 20220721
  Serious: Yes (Hospitalization, Other)
  Sender: FDA-Public Use
  Company Number: US-BIOGEN-2021BI01065110

PATIENT
  Sex: Female

DRUGS (3)
  1. TYSABRI [Suspect]
     Active Substance: NATALIZUMAB
     Indication: Multiple sclerosis
     Route: 065
     Dates: start: 20080109, end: 20091231
  2. TYSABRI [Suspect]
     Active Substance: NATALIZUMAB
     Route: 065
     Dates: start: 20100507, end: 20210916
  3. TYSABRI [Suspect]
     Active Substance: NATALIZUMAB
     Dosage: 300MG / 15 ML
     Route: 048

REACTIONS (2)
  - Endometrial cancer [Not Recovered/Not Resolved]
  - Coronavirus infection [Unknown]
